FAERS Safety Report 14368206 (Version 4)
Quarter: 2021Q3

REPORT INFORMATION
  Report Type: Spontaneous
  Country: US (occurrence: US)
  Receive Date: 20180109
  Receipt Date: 20210909
  Transmission Date: 20211014
  Serious: Yes (Other)
  Sender: FDA-Public Use
  Company Number: US-PFIZER INC-2018009668

PATIENT
  Age: 70 Year
  Sex: Female
  Weight: 57.15 kg

DRUGS (1)
  1. CHANTIX [Suspect]
     Active Substance: VARENICLINE TARTRATE
     Indication: SMOKING CESSATION THERAPY
     Dosage: 0.5 MG, UNK [QUANTITY FOR 90 DAYS: 90 DAYS]
     Route: 048
     Dates: start: 2017

REACTIONS (7)
  - Tobacco user [Unknown]
  - Rib fracture [Unknown]
  - COVID-19 [Unknown]
  - Fall [Unknown]
  - Spinal fracture [Unknown]
  - Drug interaction [Unknown]
  - Illness [Unknown]
